FAERS Safety Report 9629641 (Version 2)
Quarter: 2013Q4

REPORT INFORMATION
  Report Type: Spontaneous
  Country: US (occurrence: US)
  Receive Date: 20131017
  Receipt Date: 20131017
  Transmission Date: 20140711
  Serious: Yes (Hospitalization)
  Sender: FDA-Public Use
  Company Number: US-DENDREON CORPORATION-2013PROUSA03067

PATIENT
  Age: 72 Year
  Sex: Male
  Weight: 119.5 kg

DRUGS (19)
  1. PROVENGE [Suspect]
     Indication: PROSTATE CANCER METASTATIC
     Dosage: 250 ML, SINGLE
     Route: 042
     Dates: start: 20130712, end: 20130712
  2. PROVENGE [Suspect]
     Dosage: 250 ML, SINGLE
     Route: 042
     Dates: start: 20130726, end: 20130726
  3. COLACE [Concomitant]
     Dosage: 100 MG, BID
     Route: 048
  4. UBIQUINONE [Concomitant]
     Dosage: 1 TABLETS, QD
     Route: 048
  5. CALCIUM CITRATE [Concomitant]
     Dosage: 200 MG, BID
     Route: 048
  6. MULTIVITAMIN [Concomitant]
     Dosage: 1 TABLETS, QD
     Route: 048
  7. VITAMIN D3 [Concomitant]
     Dosage: 8000 IU, QD
     Route: 048
  8. VITAMIN B COMPLEX [Concomitant]
  9. VITAMIN C [Concomitant]
     Dosage: 500 MG, BID
     Route: 048
  10. LEUPROLIDE [Concomitant]
     Dosage: 1 DF, EVERY 6 MONTHS
     Route: 042
  11. ISOSORBIDE MONONITRATE [Concomitant]
     Dosage: 30 MG, BID
     Route: 048
  12. METFORMIN [Concomitant]
     Dosage: 500 MG, QD
     Route: 048
  13. DIGOXIN [Concomitant]
     Dosage: 250 MCG, QD
     Route: 048
  14. ATORVASTATIN [Concomitant]
     Dosage: 80 MG, QD
     Route: 048
  15. WARFARIN [Concomitant]
     Dosage: 7.5 MG ON SAT., SUN., MON., WEDS., FRI
     Route: 048
  16. WARFARIN [Concomitant]
     Dosage: 5 MG, ON TUES, THURS
     Route: 048
  17. ATENOLOL [Concomitant]
     Dosage: 50 MG, UNK
     Route: 048
  18. LISINOPRIL [Concomitant]
     Dosage: 10 MG, QD
     Route: 048
  19. VANCOMYCIN HCL [Suspect]
     Indication: STAPHYLOCOCCAL BACTERAEMIA

REACTIONS (2)
  - Staphylococcal bacteraemia [Unknown]
  - Red man syndrome [Recovered/Resolved]
